FAERS Safety Report 6700867-8 (Version None)
Quarter: 2010Q2

REPORT INFORMATION
  Report Type: 
  Country: None (occurrence: None)
  Receive Date: 20100428
  Receipt Date: 20100426
  Transmission Date: 20101027
  Serious: Yes (Other)
  Sender: FDA-Public Use
  Company Number: FI-SANOFI-AVENTIS-2010SA022633

PATIENT
  Age: 83 Year
  Sex: Female

DRUGS (20)
  1. SOLOSTAR [Suspect]
     Indication: TYPE 2 DIABETES MELLITUS
     Dates: start: 20100201
  2. APIDRA SOLOSTAR [Suspect]
     Indication: TYPE 2 DIABETES MELLITUS
     Route: 058
     Dates: start: 20100201
  3. APIDRA SOLOSTAR [Suspect]
     Route: 058
     Dates: start: 20100201
  4. APIDRA SOLOSTAR [Suspect]
     Route: 058
     Dates: start: 20100419, end: 20100419
  5. SOLOSTAR [Suspect]
  6. LANTUS [Suspect]
     Indication: TYPE 2 DIABETES MELLITUS
     Route: 058
  7. TRIMOPAN [Concomitant]
     Indication: PROPHYLAXIS URINARY TRACT INFECTION
     Route: 048
  8. FOLVITE [Concomitant]
     Route: 048
  9. FOLIC ACID/IRON [Concomitant]
     Dosage: 80MG/1MG
     Route: 048
  10. OMEPRAZOLE [Concomitant]
     Route: 048
  11. MELATONIN [Concomitant]
     Route: 048
  12. INSOMIN [Concomitant]
     Route: 048
  13. SIFROL [Concomitant]
     Route: 048
  14. CARBIDOPA-LEVODOPA [Concomitant]
     Indication: PARKINSON'S DISEASE
     Dosage: 25MG/100 MG FIVE TIMES A DAY
     Route: 048
  15. THYROXIN [Concomitant]
     Route: 048
  16. PREDNISOLON [Concomitant]
     Route: 048
  17. PRIMASPAN [Concomitant]
     Route: 048
  18. SPESICOR DOS [Concomitant]
     Route: 048
  19. FURESIS [Concomitant]
     Route: 048
  20. DIGOXIN [Concomitant]
     Route: 048

REACTIONS (2)
  - PRODUCT QUALITY ISSUE [None]
  - WRONG DRUG ADMINISTERED [None]
